FAERS Safety Report 24009530 (Version 1)
Quarter: 2024Q2

REPORT INFORMATION
  Report Type: Spontaneous
  Country: CN (occurrence: CN)
  Receive Date: 20240625
  Receipt Date: 20240625
  Transmission Date: 20240715
  Serious: Yes (Other)
  Sender: FDA-Public Use
  Company Number: CN-BAYER-2024A089053

PATIENT
  Age: 11 Year
  Sex: Female
  Weight: 49 kg

DRUGS (3)
  1. YAZ [Suspect]
     Active Substance: DROSPIRENONE\ETHINYL ESTRADIOL
     Indication: Abnormal uterine bleeding
     Dosage: 3.02 MG, TID
     Route: 048
     Dates: start: 20240614, end: 20240618
  2. AMINOMETHYLBENZOIC ACID [Concomitant]
     Active Substance: AMINOMETHYLBENZOIC ACID
     Indication: Haemostasis
     Dosage: UNK
     Route: 041
     Dates: start: 20240614
  3. ETHAMSYLATE [Concomitant]
     Active Substance: ETHAMSYLATE
     Indication: Haemostasis
     Dosage: UNK
     Dates: start: 20240614

REACTIONS (3)
  - Haematemesis [Recovered/Resolved]
  - Nausea [Recovering/Resolving]
  - Off label use [None]

NARRATIVE: CASE EVENT DATE: 20240614
